FAERS Safety Report 11241060 (Version 1)
Quarter: 2015Q3

REPORT INFORMATION
  Report Type: Spontaneous
  Country: JP (occurrence: JP)
  Receive Date: 20150706
  Receipt Date: 20150706
  Transmission Date: 20151125
  Serious: Yes (Other)
  Sender: FDA-Public Use
  Company Number: JP-GLAXOSMITHKLINE-JP2015JPN093228

PATIENT
  Age: 49 Year
  Sex: Male

DRUGS (6)
  1. PEROSPIRONE HYDROCHLORIDE HYDRATE [Concomitant]
     Active Substance: PEROSPIRONE HYDROCHLORIDE HYDRATE
  2. LAMICTAL [Suspect]
     Active Substance: LAMOTRIGINE
     Indication: BIPOLAR DISORDER
     Dosage: 300 MG, 1D
     Route: 048
     Dates: end: 20150618
  3. SEROQUEL [Concomitant]
     Active Substance: QUETIAPINE FUMARATE
  4. SEROQUEL [Concomitant]
     Active Substance: QUETIAPINE FUMARATE
     Dosage: UNK
     Dates: start: 20150618, end: 20150620
  5. PEROSPIRONE HYDROCHLORIDE HYDRATE [Concomitant]
     Active Substance: PEROSPIRONE HYDROCHLORIDE HYDRATE
     Dosage: UNK
     Dates: start: 20150618, end: 20150620
  6. DEPAKENE [Concomitant]
     Active Substance: VALPROIC ACID
     Dosage: UNK
     Dates: start: 20150618

REACTIONS (9)
  - Appendicitis [Unknown]
  - Pyrexia [Unknown]
  - Hypomania [Unknown]
  - Hyperhidrosis [Unknown]
  - Ileus [Unknown]
  - Depressed level of consciousness [Unknown]
  - Facial spasm [Unknown]
  - Neuroleptic malignant syndrome [Unknown]
  - Musculoskeletal stiffness [Unknown]

NARRATIVE: CASE EVENT DATE: 20150618
